FAERS Safety Report 5047565-7 (Version None)
Quarter: 2006Q3

REPORT INFORMATION
  Report Type: 
  Country: None (occurrence: None)
  Receive Date: 20060705
  Receipt Date: 20060705
  Transmission Date: 20061208
  Serious: Yes (Other)
  Sender: FDA-Public Use
  Company Number: None

PATIENT
  Age: 24 Year
  Sex: Male
  Weight: 63.5036 kg

DRUGS (1)
  1. ZOLOFT [Suspect]
     Indication: ANXIETY
     Dosage: 50 MG ONE TABLE PER DAY PO
     Route: 048
     Dates: start: 20030201, end: 20030501

REACTIONS (10)
  - APATHY [None]
  - COGNITIVE DISORDER [None]
  - DISSOCIATION [None]
  - DRUG INEFFECTIVE [None]
  - EMOTIONAL DISORDER [None]
  - LOSS OF LIBIDO [None]
  - MALE ORGASMIC DISORDER [None]
  - PARAESTHESIA [None]
  - SENSORY DISTURBANCE [None]
  - SEXUAL DYSFUNCTION [None]
